FAERS Safety Report 13655710 (Version 3)
Quarter: 2017Q3

REPORT INFORMATION
  Report Type: Spontaneous
  Country: US (occurrence: US)
  Receive Date: 20170615
  Receipt Date: 20170824
  Transmission Date: 20171127
  Serious: Yes (Hospitalization, Other)
  Sender: FDA-Public Use
  Company Number: US-PFIZER INC-2017258640

PATIENT
  Age: 48 Year
  Sex: Male
  Weight: 157.4 kg

DRUGS (12)
  1. LYRICA [Suspect]
     Active Substance: PREGABALIN
     Indication: FIBROMYALGIA
     Dosage: 50 MG, UNK
  2. TIZANIDINE. [Concomitant]
     Active Substance: TIZANIDINE
     Indication: ARTHROPATHY
  3. HYDROCHLOROTHIAZIDE AND LISINOPRIL [Concomitant]
     Active Substance: HYDROCHLOROTHIAZIDE\LISINOPRIL
     Indication: BLOOD PRESSURE ABNORMAL
     Dosage: 12.5 MG, UNK
     Dates: start: 2016
  4. FUROSEMIDE. [Concomitant]
     Active Substance: FUROSEMIDE
     Indication: FLUID IMBALANCE
     Dosage: 20 MG, THREE TIMES A WEEK
     Dates: start: 2016
  5. ADIPEX-P [Concomitant]
     Active Substance: PHENTERMINE HYDROCHLORIDE
     Indication: DECREASED APPETITE
     Dosage: UNK
  6. MELOXICAM. [Concomitant]
     Active Substance: MELOXICAM
     Indication: MUSCULOSKELETAL PAIN
     Dosage: 15 MG, UNK
     Dates: start: 2016
  7. LYRICA [Suspect]
     Active Substance: PREGABALIN
     Indication: ARTHRITIS
     Dosage: 200 MG, DAILY [ONE IN THE MORNING, ONE AT LUNCH AND 2 AT NIGHT]
  8. NUCYNTA [Concomitant]
     Active Substance: TAPENTADOL HYDROCHLORIDE
     Indication: PAIN
     Dosage: 50 MG, 1X/DAY [ONE AT NIGHT]
  9. TIZANIDINE. [Concomitant]
     Active Substance: TIZANIDINE
     Indication: MUSCLE DISORDER
     Dosage: 2 MG, 1X/DAY [ONE AT NIGHT]
  10. LORAZEPAM. [Concomitant]
     Active Substance: LORAZEPAM
     Indication: NERVE INJURY
     Dosage: 1 MG, THREE TIMES A WEEK, M,W,F
     Dates: start: 201609
  11. NABUMETONE. [Concomitant]
     Active Substance: NABUMETONE
     Indication: ARTHRITIS
     Dosage: 750 MG, AS NEEDED
  12. POTASSIUM CHLORIDE. [Concomitant]
     Active Substance: POTASSIUM CHLORIDE
     Dosage: 20 MEQ, 1X/DAY [THREE TIMES A WEEK]

REACTIONS (12)
  - Middle insomnia [Recovered/Resolved]
  - Fatigue [Not Recovered/Not Resolved]
  - Hypoaesthesia [Recovered/Resolved]
  - Frustration tolerance decreased [Unknown]
  - Poor quality sleep [Unknown]
  - Fall [Recovered/Resolved]
  - Impaired driving ability [Unknown]
  - Dizziness [Recovered/Resolved]
  - Feeling drunk [Recovered/Resolved]
  - Narcolepsy [Recovered/Resolved]
  - Weight decreased [Unknown]
  - Gait disturbance [Unknown]
